FAERS Safety Report 25902084 (Version 2)
Quarter: 2025Q4

REPORT INFORMATION
  Report Type: Spontaneous
  Country: JP (occurrence: JP)
  Receive Date: 20251009
  Receipt Date: 20251023
  Transmission Date: 20260118
  Serious: No
  Sender: SHIONOGI
  Company Number: JP-shionogi-202500010747

PATIENT
  Age: 8 Decade
  Sex: Male

DRUGS (1)
  1. CEFIDEROCOL [Suspect]
     Active Substance: CEFIDEROCOL
     Indication: Osteomyelitis
     Route: 041
     Dates: start: 20250818, end: 202509

REACTIONS (2)
  - Drug resistance [Unknown]
  - No adverse event [Unknown]
